FAERS Safety Report 5973176-2 (Version None)
Quarter: 2008Q4

REPORT INFORMATION
  Report Type: 
  Country: None (occurrence: None)
  Receive Date: 20081201
  Receipt Date: 20081201
  Transmission Date: 20090506
  Serious: No
  Sender: FDA-Public Use
  Company Number: None

PATIENT

DRUGS (3)
  1. LIPITOR [Suspect]
     Dosage: TABLET
  2. LIPITOR [Suspect]
     Dosage: TABLET
  3. LORTAB [Suspect]
     Dosage: TABLET

REACTIONS (3)
  - DRUG DISPENSING ERROR [None]
  - EMOTIONAL DISORDER [None]
  - MEDICATION ERROR [None]
